FAERS Safety Report 7889338-3 (Version None)
Quarter: 2011Q4

REPORT INFORMATION
  Report Type: 
  Country: None (occurrence: None)
  Receive Date: 20111103
  Receipt Date: 20111021
  Transmission Date: 20120403
  Serious: Yes (Other)
  Sender: FDA-Public Use
  Company Number: US-ELI_LILLY_AND_COMPANY-US201110006383

PATIENT
  Sex: Female

DRUGS (3)
  1. ZYPREXA [Suspect]
     Dosage: 2.5 MG, UNKNOWN
  2. LITHIUM CITRATE [Concomitant]
  3. ZYPREXA [Suspect]
     Indication: AFFECTIVE DISORDER
     Dosage: 10 MG, BID
     Dates: start: 20040101

REACTIONS (4)
  - WEIGHT INCREASED [None]
  - SKIN DISORDER [None]
  - OFF LABEL USE [None]
  - PSYCHOTIC DISORDER [None]
